FAERS Safety Report 6905539-2 (Version None)
Quarter: 2010Q3

REPORT INFORMATION
  Report Type: 
  Country: None (occurrence: None)
  Receive Date: 20100804
  Receipt Date: 20100727
  Transmission Date: 20110219
  Serious: Yes (Other)
  Sender: FDA-Public Use
  Company Number: JP-PFIZER INC-2010080470

PATIENT
  Age: 30 Year
  Sex: Female

DRUGS (2)
  1. MYCOBUTIN [Suspect]
     Indication: LYMPH NODE TUBERCULOSIS
     Dosage: 150 MG/DAY
     Route: 048
     Dates: start: 20100419
  2. NELFINAVIR MESILATE [Suspect]
     Dosage: 1250 MG, 2X/DAY

REACTIONS (1)
  - LOSS OF CONSCIOUSNESS [None]
